FAERS Safety Report 8401240-7 (Version None)
Quarter: 2012Q2

REPORT INFORMATION
  Report Type: 
  Country: None (occurrence: None)
  Receive Date: 20120601
  Receipt Date: 20120530
  Transmission Date: 20120825
  Serious: Yes (Hospitalization)
  Sender: FDA-Public Use
  Company Number: US-BAYER-2012-002935

PATIENT
  Age: 74 Year
  Sex: Male
  Weight: 100 kg

DRUGS (7)
  1. BETASERON [Suspect]
     Dosage: 0.3 MG, QOD
     Route: 058
     Dates: start: 20080401
  2. PLAVIX [Concomitant]
  3. BETASERON [Suspect]
     Indication: MULTIPLE SCLEROSIS
     Dosage: UNK, TIW
     Dates: start: 20030301
  4. METOPROLOL TARTRATE [Concomitant]
  5. BACLOFEN [Concomitant]
  6. AMLODIPINE [Concomitant]
  7. INSULIN [Concomitant]

REACTIONS (1)
  - URINARY TRACT INFECTION [None]
